FAERS Safety Report 7302599-4 (Version None)
Quarter: 2011Q1

REPORT INFORMATION
  Report Type: 
  Country: None (occurrence: None)
  Receive Date: 20110218
  Receipt Date: 20110214
  Transmission Date: 20110831
  Serious: Yes (Hospitalization, Other)
  Sender: FDA-Public Use
  Company Number: FR-PFIZER INC-2011031902

PATIENT
  Age: 88 Year
  Sex: Male

DRUGS (11)
  1. RISPERDAL [Suspect]
     Dosage: UNK
     Route: 048
     Dates: end: 20100326
  2. DIPIPERON [Suspect]
     Dosage: 6 DF, 3X/DAY
     Route: 048
     Dates: start: 20100321, end: 20100326
  3. ANDROCUR [Concomitant]
     Indication: PROSTATE CANCER
     Dosage: 50 MG, 3X/DAY
     Route: 048
  4. LOVENOX [Concomitant]
     Route: 058
  5. ZOLOFT [Suspect]
     Dosage: UNK
     Route: 048
     Dates: end: 20100326
  6. TRANXENE [Suspect]
     Indication: AGITATION
     Dosage: 20 MG, 1X/DAY
     Route: 030
     Dates: start: 20100324, end: 20100324
  7. NEXIUM [Concomitant]
     Dosage: 40 MG, 1X/DAY
  8. SERESTA [Suspect]
     Dosage: UNK
     Route: 048
     Dates: end: 20100326
  9. FOSFOMYCIN [Concomitant]
     Indication: URINARY TRACT INFECTION
     Dosage: 3 G, UNK
     Route: 048
  10. OROKEN [Concomitant]
     Indication: URINARY TRACT INFECTION
     Route: 048
  11. VASTAREL [Concomitant]
     Route: 048

REACTIONS (9)
  - LOSS OF CONSCIOUSNESS [None]
  - LEUKOCYTOSIS [None]
  - DISTURBANCE IN ATTENTION [None]
  - EXTRAPYRAMIDAL DISORDER [None]
  - TACHYCARDIA [None]
  - AGITATION [None]
  - CREATININE RENAL CLEARANCE DECREASED [None]
  - RHABDOMYOLYSIS [None]
  - RESPIRATORY DISTRESS [None]
